FAERS Safety Report 25873833 (Version 1)
Quarter: 2025Q4

REPORT INFORMATION
  Report Type: Spontaneous
  Country: US (occurrence: US)
  Receive Date: 20251002
  Receipt Date: 20251002
  Transmission Date: 20260117
  Serious: No
  Sender: INTRA-CELLULAR THERAPIES
  Company Number: US-INTRA-CELLULAR THERAPIES, INC.-2025ICT01175

PATIENT
  Age: 31 Year
  Sex: Female

DRUGS (1)
  1. CAPLYTA [Suspect]
     Active Substance: LUMATEPERONE
     Indication: Affect lability
     Dosage: 42 MG
     Dates: start: 20250530, end: 20250530

REACTIONS (6)
  - Muscle disorder [Recovered/Resolved]
  - Feeling of body temperature change [Recovered/Resolved]
  - Sensitive skin [Recovered/Resolved]
  - Eye movement disorder [Recovered/Resolved]
  - Insomnia [Recovered/Resolved]
  - Off label use [Recovered/Resolved]

NARRATIVE: CASE EVENT DATE: 20250530
